FAERS Safety Report 7046332-2 (Version None)
Quarter: 2010Q4

REPORT INFORMATION
  Report Type: 
  Country: None (occurrence: None)
  Receive Date: 20101014
  Receipt Date: 20101004
  Transmission Date: 20110411
  Serious: Yes (Hospitalization)
  Sender: FDA-Public Use
  Company Number: GXKR2010IT11234

PATIENT
  Sex: Female

DRUGS (12)
  1. BISOPROLOL SANDOZ (NGX) [Suspect]
     Indication: MYOCARDIAL INFARCTION
     Dosage: 2.5 MG/DAY
     Route: 048
     Dates: start: 20100527, end: 20100614
  2. CARDIOASPIRIN [Suspect]
     Indication: MYOCARDIAL INFARCTION
     Dosage: 1 DF PER DAY
     Route: 048
     Dates: start: 20070601, end: 20100614
  3. DICLOFENAC SODIUM [Suspect]
     Indication: ARTHRALGIA
     Dosage: UNK
     Route: 048
     Dates: start: 20100510, end: 20100520
  4. CALCIUM CARBONATE W/COLECALCIFEROL [Concomitant]
     Route: 065
  5. EUTIROX [Concomitant]
     Dosage: UNK
     Route: 048
  6. ESKIM [Concomitant]
     Route: 065
  7. AMOXICILLIN SODIUM W/CLAVULANATE POTASSIUM [Concomitant]
     Indication: PHARYNGOTONSILLITIS
     Dosage: UNK
     Route: 065
     Dates: start: 20100610, end: 20100614
  8. BENTELAN [Concomitant]
     Indication: EYE OEDEMA
     Dosage: UNK
     Route: 065
  9. BENTELAN [Concomitant]
     Indication: LIP OEDEMA
  10. PEPTAZOL [Concomitant]
     Route: 065
  11. CRESTOR [Concomitant]
     Route: 065
  12. MODURET [Concomitant]
     Route: 065

REACTIONS (1)
  - STEVENS-JOHNSON SYNDROME [None]
